FAERS Safety Report 8075679-6 (Version None)
Quarter: 2012Q1

REPORT INFORMATION
  Report Type: 
  Country: None (occurrence: None)
  Receive Date: 20120127
  Receipt Date: 20120118
  Transmission Date: 20120608
  Serious: Yes (Other)
  Sender: FDA-Public Use
  Company Number: AT-ASTRAZENECA-2008PK02064

PATIENT
  Age: 25209 Day
  Sex: Female
  Weight: 84 kg

DRUGS (5)
  1. ARIMIDEX [Suspect]
     Indication: BREAST CANCER
     Route: 048
  2. CARVEDILOL [Concomitant]
  3. ARIMIDEX [Suspect]
     Route: 048
  4. OXAZEPAN [Concomitant]
  5. RAMIPRIL [Concomitant]

REACTIONS (1)
  - DIARRHOEA HAEMORRHAGIC [None]
